FAERS Safety Report 14056832 (Version 1)
Quarter: 2017Q4

REPORT INFORMATION
  Report Type: Spontaneous
  Country: IT (occurrence: IT)
  Receive Date: 20171006
  Receipt Date: 20171006
  Transmission Date: 20180321
  Serious: Yes (Death, Hospitalization, Other)
  Sender: FDA-Public Use
  Company Number: IT-PFIZER INC-2017428961

PATIENT
  Age: 84 Year
  Sex: Female
  Weight: 67 kg

DRUGS (1)
  1. SUNITINIB MALATE. [Suspect]
     Active Substance: SUNITINIB MALATE
     Indication: RENAL CANCER METASTATIC
     Dosage: 25 MG, DAILY
     Route: 048
     Dates: start: 20170629, end: 20170718

REACTIONS (9)
  - Respiratory failure [Fatal]
  - Pancytopenia [Fatal]
  - Rales [Fatal]
  - Thrombocytopenia [Fatal]
  - Hypotension [Fatal]
  - Azotaemia [Fatal]
  - Sopor [Fatal]
  - Pyrexia [Fatal]
  - Leukopenia [Fatal]

NARRATIVE: CASE EVENT DATE: 20170718
